FAERS Safety Report 8763138 (Version 5)
Quarter: 2012Q4

REPORT INFORMATION
  Report Type: Report from Study
  Country: GB (occurrence: GB)
  Receive Date: 20120831
  Receipt Date: 20121204
  Transmission Date: 20130627
  Serious: Yes (Other)
  Sender: FDA-Public Use
  Company Number: GB-CELGENEUS-167-21880-12082583

PATIENT
  Age: 75 Year
  Sex: Female
  Weight: 68 kg

DRUGS (6)
  1. REVLIMID [Suspect]
     Indication: MULTIPLE MYELOMA
     Route: 048
     Dates: start: 20110506
  2. REVLIMID [Suspect]
     Route: 048
     Dates: start: 20120819
  3. CYCLOPHOSPHAMIDE [Suspect]
     Indication: DRUG USE FOR UNKNOWN INDICATION
     Dosage: 500 Milligram
     Route: 048
     Dates: start: 20101118
  4. DEXAMETHASONE [Suspect]
     Indication: DRUG USE FOR UNKNOWN INDICATION
     Dosage: 20 Milligram
     Route: 048
     Dates: start: 20101118
  5. THALIDOMIDE [Suspect]
     Indication: MULTIPLE MYELOMA
     Dosage: 50 Milligram
     Route: 048
     Dates: start: 20111118
  6. THALIDOMIDE [Suspect]
     Dosage: 50 Milligram
     Route: 048
     Dates: start: 20101118

REACTIONS (1)
  - Lentigo maligna [Recovered/Resolved]
